FAERS Safety Report 6697121-X (Version None)
Quarter: 2010Q2

REPORT INFORMATION
  Report Type: 
  Country: None (occurrence: None)
  Receive Date: 20100422
  Receipt Date: 20100406
  Transmission Date: 20101027
  Serious: Yes (Hospitalization)
  Sender: FDA-Public Use
  Company Number: 2010-00409

PATIENT
  Age: 69 Year

DRUGS (5)
  1. SIMVASTATIN [Suspect]
     Indication: DRUG USE FOR UNKNOWN INDICATION
     Dosage: 20 MG (1 IN 1 D), ORAL
     Route: 048
  2. WARFARIN SODIUM [Suspect]
     Indication: ATRIAL FIBRILLATION
     Dosage: 4 MG (1 IN 1 D), ORAL
     Route: 048
  3. ALLOPURINOL [Concomitant]
  4. BISOPROLOL FUMARATE [Concomitant]
  5. PERINDOPRIL [Concomitant]

REACTIONS (2)
  - DRUG INTERACTION [None]
  - EPISTAXIS [None]
